FAERS Safety Report 9163907 (Version 2)
Quarter: 2013Q2

REPORT INFORMATION
  Report Type: Report from Study
  Country: DE (occurrence: DE)
  Receive Date: 20130314
  Receipt Date: 20130502
  Transmission Date: 20140414
  Serious: Yes (Hospitalization, Other)
  Sender: FDA-Public Use
  Company Number: DE-UCBSA-080494

PATIENT
  Age: 42 Year
  Sex: Male

DRUGS (5)
  1. VIMPAT [Suspect]
     Indication: EPILEPSY
     Dosage: DOSE: 50 MG/DAY
     Dates: start: 20090206, end: 2009
  2. VIMPAT [Suspect]
     Indication: EPILEPSY
     Dosage: DOSE: 400 MG/DAY
     Dates: start: 2009
  3. LEVETIRACETAM [Concomitant]
     Indication: EPILEPSY
     Dosage: DOSE: 3000 MG/DAY
  4. LEVETIRACETAM [Concomitant]
     Indication: EPILEPSY
     Dosage: DOS: 2500 MG/DAY
     Dates: start: 2009
  5. LAMOTRIGINE [Concomitant]
     Indication: EPILEPSY
     Dosage: DOSE: 225 MG/DAY
     Dates: end: 2009

REACTIONS (2)
  - Convulsion [Unknown]
  - Grand mal convulsion [Unknown]
